FAERS Safety Report 5529936-5 (Version None)
Quarter: 2007Q4

REPORT INFORMATION
  Report Type: 
  Country: None (occurrence: None)
  Receive Date: 20071129
  Receipt Date: 20071116
  Transmission Date: 20080405
  Serious: No
  Sender: FDA-Public Use
  Company Number: US-BOEHRINGER INGELHEIM PHARMACEUTICALS, INC.-2007-BP-19909BP

PATIENT
  Sex: Male

DRUGS (7)
  1. SPIRIVA [Suspect]
     Indication: CHRONIC OBSTRUCTIVE PULMONARY DISEASE
     Route: 055
     Dates: start: 20070804
  2. PLAVIX [Concomitant]
     Indication: POOR PERIPHERAL CIRCULATION
  3. LIPITOR [Concomitant]
     Indication: BLOOD CHOLESTEROL
  4. ALBUTEROL [Concomitant]
     Indication: CHRONIC OBSTRUCTIVE PULMONARY DISEASE
  5. FLOVENT [Concomitant]
     Indication: CHRONIC OBSTRUCTIVE PULMONARY DISEASE
  6. TOPROL-XL [Concomitant]
  7. DOXYCYCLINE [Concomitant]

REACTIONS (1)
  - DRUG INEFFECTIVE [None]
